FAERS Safety Report 16857536 (Version 1)
Quarter: 2019Q3

REPORT INFORMATION
  Report Type: Spontaneous
  Country: US (occurrence: US)
  Receive Date: 20190926
  Receipt Date: 20190926
  Transmission Date: 20191005
  Serious: Yes (Death)
  Sender: FDA-Public Use
  Company Number: US-PFIZER INC-2019357860

PATIENT
  Age: 81 Year
  Sex: Male
  Weight: 104.3 kg

DRUGS (2)
  1. XALKORI [Suspect]
     Active Substance: CRIZOTINIB
     Indication: LUNG NEOPLASM MALIGNANT
     Dosage: 500 MG, ALTERNATE DAY (250 MG BID ALT 250 MG ONCE DAILY)
  2. XALKORI [Suspect]
     Active Substance: CRIZOTINIB
     Dosage: 250 MG, ALTERNATE DAY [1 FOR 1 DAY AND THEN 2 THE NEXTDAY]
     Route: 048
     Dates: start: 2018

REACTIONS (1)
  - Cardiac failure congestive [Fatal]
